FAERS Safety Report 4293969-X (Version None)
Quarter: 2004Q1

REPORT INFORMATION
  Report Type: 
  Country: None (occurrence: None)
  Receive Date: 20040210
  Receipt Date: 20040204
  Transmission Date: 20041129
  Serious: Yes (Other)
  Sender: FDA-Public Use
  Company Number: TPA2004A00108

PATIENT
  Sex: 0

DRUGS (1)
  1. ACTOS [Suspect]
     Dosage: 45 MG, PER ORAL
     Route: 048

REACTIONS (3)
  - BILE DUCT OBSTRUCTION [None]
  - LIVER FUNCTION TEST [None]
  - PANCREATIC CARCINOMA [None]
